FAERS Safety Report 4513345-1 (Version None)
Quarter: 2004Q4

REPORT INFORMATION
  Report Type: 
  Country: None (occurrence: None)
  Receive Date: 20041130
  Receipt Date: 20040819
  Transmission Date: 20050328
  Serious: Yes (Hospitalization)
  Sender: FDA-Public Use
  Company Number: US-BRISTOL-MYERS SQUIBB COMPANY-12676854

PATIENT
  Age: 71 Year
  Sex: Female

DRUGS (9)
  1. ERBITUX [Suspect]
     Indication: COLON CANCER
     Route: 041
     Dates: start: 20040818, end: 20040818
  2. BENADRYL [Concomitant]
     Indication: PREMEDICATION
     Route: 042
     Dates: start: 20040818, end: 20040818
  3. LIPITOR [Concomitant]
  4. LOPRESSOR [Concomitant]
     Indication: BLOOD PRESSURE
  5. PHOSLO [Concomitant]
  6. NORVASC [Concomitant]
  7. FOLTX [Concomitant]
  8. COUMADIN [Concomitant]
  9. NEPHROCAPS [Concomitant]

REACTIONS (1)
  - ANAPHYLACTIC REACTION [None]
